FAERS Safety Report 6259580-6 (Version None)
Quarter: 2009Q3

REPORT INFORMATION
  Report Type: 
  Country: None (occurrence: None)
  Receive Date: 20090708
  Receipt Date: 20090625
  Transmission Date: 20100115
  Serious: Yes (Other)
  Sender: FDA-Public Use
  Company Number: CA-PFIZER INC-2009232645

PATIENT
  Age: 58 Year

DRUGS (3)
  1. DILANTIN [Suspect]
     Indication: CONVULSION PROPHYLAXIS
     Dosage: 200 MG, 2X/DAY
  2. SYNTHROID [Interacting]
     Dosage: UNK
  3. NEXIUM [Interacting]
     Dosage: UNK

REACTIONS (2)
  - ANTICONVULSANT DRUG LEVEL INCREASED [None]
  - DRUG INTERACTION [None]
